FAERS Safety Report 18266343 (Version 1)
Quarter: 2020Q3

REPORT INFORMATION
  Report Type: Spontaneous
  Country: AU (occurrence: AU)
  Receive Date: 20200915
  Receipt Date: 20200915
  Transmission Date: 20201103
  Serious: Yes (Other)
  Sender: FDA-Public Use
  Company Number: AU-IPCA LABORATORIES LIMITED-IPC-2020-AU-003045

PATIENT

DRUGS (1)
  1. HYDROXYCHLOROQUINE [Suspect]
     Active Substance: HYDROXYCHLOROQUINE
     Indication: RHEUMATOID ARTHRITIS
     Dosage: 400 MILLIGRAM, QD
     Route: 065

REACTIONS (4)
  - Cornea verticillata [Recovered/Resolved]
  - Retinopathy [Recovered/Resolved]
  - Retinal toxicity [Recovered/Resolved]
  - Toxicity to various agents [Recovered/Resolved]
